FAERS Safety Report 4922694-4 (Version None)
Quarter: 2006Q1

REPORT INFORMATION
  Report Type: 
  Country: None (occurrence: None)
  Receive Date: 20060224
  Receipt Date: 20060214
  Transmission Date: 20060701
  Serious: Yes (Other)
  Sender: FDA-Public Use
  Company Number: FR-ABBOTT-06P-056-0324872-00

PATIENT
  Sex: Female

DRUGS (3)
  1. LEVOTHYROXINE SODIUM [Suspect]
     Indication: DRUG USE FOR UNKNOWN INDICATION
  2. SEROPLEX FILM-COATED TABLETS [Suspect]
     Indication: DRUG USE FOR UNKNOWN INDICATION
     Route: 048
  3. INTERFERON ALFA [Interacting]
     Indication: DRUG USE FOR UNKNOWN INDICATION

REACTIONS (2)
  - ATRIAL FIBRILLATION [None]
  - DRUG INTERACTION [None]
